FAERS Safety Report 7929993 (Version 23)
Quarter: 2012Q4

REPORT INFORMATION
  Report Type: 
  Country: US (occurrence: US)
  Receive Date: 20110504
  Receipt Date: 20121030
  Transmission Date: 20130627
  Serious: Yes (Other)
  Sender: FDA-Public Use
  Company Number: PHEH2011US00475

PATIENT
  Sex: Female

DRUGS (13)
  1. ZOMETA [Suspect]
     Dosage: 4 mg, Q2MO
     Dates: start: 2004, end: 2008
  2. FOSAMAX [Suspect]
     Indication: NEOPLASM MALIGNANT
  3. CLINDAMYCIN [Concomitant]
     Dosage: 300 mg
  4. METRONIDAZOLE [Concomitant]
     Dosage: 500 mg
  5. ESTRING [Concomitant]
     Dosage: 2 mg, Q3MO
  6. SYNTHROID [Concomitant]
     Dosage: 1 mg,
  7. SYMBICORT [Concomitant]
  8. XOPENEX HFA [Concomitant]
  9. CALCITRIOL [Concomitant]
  10. ETHAMBUTOL [Concomitant]
     Dosage: 400 mg,
  11. AZITHROMYCIN [Concomitant]
     Dosage: 250 mg,
  12. CALCITONIN [Concomitant]
  13. VITAMIN D [Concomitant]

REACTIONS (51)
  - Osteonecrosis of jaw [Unknown]
  - Pain [Unknown]
  - Infection [Unknown]
  - Deformity [Unknown]
  - Injury [Unknown]
  - Emotional distress [Unknown]
  - Anxiety [Unknown]
  - Physical disability [Unknown]
  - Exposed bone in jaw [Unknown]
  - Primary sequestrum [Unknown]
  - Hypotension [Unknown]
  - Thyroid disorder [Unknown]
  - Breast cancer [Unknown]
  - Intervertebral disc degeneration [Unknown]
  - Intervertebral disc disorder [Unknown]
  - Pleural effusion [Unknown]
  - Scoliosis [Unknown]
  - Pulmonary mass [Unknown]
  - Pelvic pain [Unknown]
  - Osteoporosis [Unknown]
  - Back pain [Unknown]
  - Osteopenia [Unknown]
  - Bone lesion [Unknown]
  - Bronchiectasis [Unknown]
  - Dyspnoea [Unknown]
  - Chronic obstructive pulmonary disease [Unknown]
  - Mycobacterium avium complex infection [Unknown]
  - Road traffic accident [Unknown]
  - Lip squamous cell carcinoma [Unknown]
  - Bronchiolitis [Unknown]
  - Haemorrhoids [Unknown]
  - Abdominal pain lower [Unknown]
  - Cervical dysplasia [Unknown]
  - Loose tooth [Unknown]
  - Skin cancer [Unknown]
  - Osteomyelitis [Unknown]
  - Oral disorder [Unknown]
  - Large intestine polyp [Recovered/Resolved]
  - Interstitial lung disease [Unknown]
  - Vascular calcification [Unknown]
  - Compression fracture [Unknown]
  - Deep vein thrombosis [Unknown]
  - Thrombophlebitis [Unknown]
  - Conjunctivitis viral [Unknown]
  - Cataract congenital [Unknown]
  - Jaw disorder [Unknown]
  - Uterine cervical squamous metaplasia [Unknown]
  - Melanosis coli [Unknown]
  - Scab [Unknown]
  - Nausea [Unknown]
  - Dry eye [Unknown]
